FAERS Safety Report 23824903 (Version 1)
Quarter: 2024Q2

REPORT INFORMATION
  Report Type: Spontaneous
  Country: US (occurrence: US)
  Receive Date: 20240507
  Receipt Date: 20240507
  Transmission Date: 20240716
  Serious: No
  Sender: FDA-Public Use
  Company Number: US-002147023-NVSC2024US096188

PATIENT
  Age: 71 Year
  Sex: Female
  Weight: 110.9 kg

DRUGS (1)
  1. KISQALI [Suspect]
     Active Substance: RIBOCICLIB
     Indication: Breast cancer
     Dosage: 600 MG, QD (600 MG BY MOUTH DAILY FOR 21 DAYS AND TAKE 7 DAYS OFF)
     Route: 048

REACTIONS (4)
  - Pruritus [Unknown]
  - Onychoclasis [Unknown]
  - Alopecia [Unknown]
  - Anaemia [Unknown]
